FAERS Safety Report 9706900 (Version 1)
Quarter: 2013Q4

REPORT INFORMATION
  Report Type: Report from Study
  Country: CA (occurrence: CA)
  Receive Date: 20131125
  Receipt Date: 20131125
  Transmission Date: 20140711
  Serious: Yes (Life-Threatening)
  Sender: FDA-Public Use
  Company Number: CA-JNJFOC-20131114228

PATIENT
  Age: 33 Year
  Sex: Female
  Weight: 79.38 kg

DRUGS (6)
  1. REMICADE [Suspect]
     Indication: CROHN^S DISEASE
     Route: 042
     Dates: start: 20131121
  2. REMICADE [Suspect]
     Indication: CROHN^S DISEASE
     Route: 042
     Dates: start: 20120731
  3. IMURAN [Concomitant]
     Route: 048
  4. SYNTHROID [Concomitant]
     Dosage: 150 MCG/175 MCG ON ALTERNATE DAYS PER ORAL DAILY
     Route: 048
  5. PAXIL [Concomitant]
     Route: 048
  6. BIRTH CONTROL PILL [Concomitant]
     Route: 048

REACTIONS (3)
  - Chest discomfort [Recovering/Resolving]
  - Flushing [Recovering/Resolving]
  - Infusion related reaction [Recovering/Resolving]
